FAERS Safety Report 6108928-1 (Version None)
Quarter: 2009Q1

REPORT INFORMATION
  Report Type: 
  Country: None (occurrence: None)
  Receive Date: 20090306
  Receipt Date: 20090224
  Transmission Date: 20090719
  Serious: Yes (Other)
  Sender: FDA-Public Use
  Company Number: 8034930

PATIENT
  Weight: 2.04 kg

DRUGS (5)
  1. KEPPRA [Suspect]
     Dosage: 500 MG /D TRP
     Route: 064
     Dates: start: 20080106, end: 20080112
  2. KEPPRA [Suspect]
     Dosage: 1000 MG /D TRP
     Route: 064
     Dates: start: 20080113, end: 20080119
  3. KEPPRA [Suspect]
     Dosage: 1500 MG /D TRP
     Route: 064
     Dates: start: 20080120, end: 20080125
  4. KEPPRA [Suspect]
     Dosage: 2000 MG /D TRP
     Route: 064
     Dates: start: 20080126, end: 20080213
  5. KEPPRA [Suspect]
     Dosage: 3000 MG /D TRP
     Route: 064
     Dates: start: 20080214, end: 20080604

REACTIONS (3)
  - FAILURE TO THRIVE [None]
  - MATERNAL DRUGS AFFECTING FOETUS [None]
  - PREMATURE BABY [None]
